FAERS Safety Report 23745397 (Version 8)
Quarter: 2025Q4

REPORT INFORMATION
  Report Type: Report from Study
  Country: JP (occurrence: JP)
  Receive Date: 20240416
  Receipt Date: 20251224
  Transmission Date: 20260118
  Serious: Yes (Death, Other)
  Sender: ABBVIE
  Company Number: JP-TAKEDA-2024TJP005414

PATIENT
  Age: 61 Year
  Sex: Male
  Weight: 41 kg

DRUGS (7)
  1. LEUPROLIDE ACETATE [Suspect]
     Active Substance: LEUPROLIDE ACETATE
     Indication: Bulbospinal muscular atrophy congenital
     Dosage: 11.25 MILLIGRAM, Q3MONTHS
     Route: 058
     Dates: start: 20230915, end: 20231208
  2. ALESION [Concomitant]
     Active Substance: EPINASTINE HYDROCHLORIDE
     Indication: Product used for unknown indication
     Dosage: 20 MILLIGRAM
     Route: 065
  3. RIVOTRIL [Concomitant]
     Active Substance: CLONAZEPAM
     Indication: Familial tremor
     Dosage: 1 MILLIGRAM, BID
     Route: 048
     Dates: start: 1998
  4. Arotinolol hydrochloride dsp [Concomitant]
     Indication: Product used for unknown indication
     Dosage: 30 MILLIGRAM
     Route: 065
  5. TERIPARATIDE ACETATE [Concomitant]
     Active Substance: TERIPARATIDE ACETATE
     Indication: Product used for unknown indication
     Dosage: INJECTION
     Route: 058
  6. Adoair diskus [Concomitant]
     Indication: Product used for unknown indication
  7. PROCATEROL HYDROCHLORIDE [Concomitant]
     Active Substance: PROCATEROL HYDROCHLORIDE
     Indication: Product used for unknown indication
     Route: 065

REACTIONS (3)
  - Completed suicide [Fatal]
  - Fall [Recovering/Resolving]
  - Osteoporotic fracture [Unknown]

NARRATIVE: CASE EVENT DATE: 20231015
